FAERS Safety Report 9032335 (Version 1)
Quarter: 2013Q1

REPORT INFORMATION
  Report Type: Spontaneous
  Country: US (occurrence: US)
  Receive Date: 20130122
  Receipt Date: 20130122
  Transmission Date: 20140127
  Serious: No
  Sender: FDA-Public Use
  Company Number: US-PFIZER INC-2013024057

PATIENT
  Sex: Female

DRUGS (2)
  1. LYRICA [Suspect]
     Indication: BACK DISORDER
     Dosage: UNK
  2. LYRICA [Suspect]
     Indication: HYPOAESTHESIA

REACTIONS (2)
  - Pain [Unknown]
  - Drug ineffective [Unknown]
